FAERS Safety Report 23636064 (Version 1)
Quarter: 2024Q1

REPORT INFORMATION
  Report Type: Report from Study
  Country: NL (occurrence: NL)
  Receive Date: 20240315
  Receipt Date: 20240315
  Transmission Date: 20240409
  Serious: Yes (Death, Other)
  Sender: FDA-Public Use
  Company Number: NL-ABBVIE-5675015

PATIENT

DRUGS (1)
  1. VENETOCLAX [Suspect]
     Active Substance: VENETOCLAX
     Indication: Chronic lymphocytic leukaemia
     Dosage: DURATION TEXT: 108 WEEKS
     Route: 048

REACTIONS (4)
  - Autoimmune haemolytic anaemia [Fatal]
  - Adverse event [Unknown]
  - Adverse event [Unknown]
  - Death [Fatal]
